FAERS Safety Report 23820418 (Version 1)
Quarter: 2024Q2

REPORT INFORMATION
  Report Type: Other
  Country: DE (occurrence: DE)
  Receive Date: 20240506
  Receipt Date: 20240506
  Transmission Date: 20240716
  Serious: Yes (Congenital Anomaly, Other)
  Sender: FDA-Public Use
  Company Number: None

PATIENT
  Age: 1 Day
  Sex: Male
  Weight: 1.4 kg

DRUGS (6)
  1. QUETIAPINE [Suspect]
     Active Substance: QUETIAPINE
     Indication: Tension
     Dosage: 200 MILLIGRAM, QD
     Route: 064
     Dates: start: 20211213
  2. QUETIAPINE [Suspect]
     Active Substance: QUETIAPINE
     Dosage: 100 MILLIGRAM, QD IN THE LATE PREGNANCY COURSE
     Route: 064
     Dates: start: 20211213
  3. PREGABALIN [Suspect]
     Active Substance: PREGABALIN
     Indication: Post-traumatic stress disorder
     Dosage: 600 MILLIGRAM, QD
     Route: 064
     Dates: start: 20211213
  4. VENLAFAXINE [Suspect]
     Active Substance: VENLAFAXINE HYDROCHLORIDE
     Indication: Anxiety disorder
     Dosage: 150 MILLIGRAM, QD
     Route: 064
     Dates: start: 20211213
  5. METHADONE [Suspect]
     Active Substance: METHADONE HYDROCHLORIDE
     Indication: Drug dependence
     Dosage: 60 MILLIGRAM, QD
     Route: 064
     Dates: start: 20211213
  6. ONDANSETRON [Concomitant]
     Active Substance: ONDANSETRON
     Indication: Morning sickness
     Dosage: UNK, SEVERAL TIMES DURING PREGNANCY
     Route: 064

REACTIONS (5)
  - Congenital hydrocephalus [Unknown]
  - Drug withdrawal syndrome neonatal [Recovered/Resolved]
  - Congenital nystagmus [Unknown]
  - Developmental delay [Unknown]
  - Foetal exposure during pregnancy [Unknown]

NARRATIVE: CASE EVENT DATE: 20220701
